FAERS Safety Report 8101990-6 (Version None)
Quarter: 2012Q1

REPORT INFORMATION
  Report Type: 
  Country: None (occurrence: None)
  Receive Date: 20120131
  Receipt Date: 20120118
  Transmission Date: 20120608
  Serious: Yes (Hospitalization)
  Sender: FDA-Public Use
  Company Number: JP-ELI_LILLY_AND_COMPANY-JP201110005103

PATIENT
  Age: 75 Year
  Sex: Female

DRUGS (2)
  1. CORTICOSTEROIDS [Concomitant]
     Indication: MUSCULOSKELETAL PAIN
     Dosage: UNK
     Route: 048
  2. FORTEO [Suspect]
     Dosage: UNK
     Route: 058
     Dates: start: 20111011

REACTIONS (2)
  - OEDEMA PERIPHERAL [None]
  - HOSPITALISATION [None]
